FAERS Safety Report 7129215-9 (Version None)
Quarter: 2010Q4

REPORT INFORMATION
  Report Type: 
  Country: None (occurrence: None)
  Receive Date: 20101130
  Receipt Date: 20101115
  Transmission Date: 20110411
  Serious: Yes (Other)
  Sender: FDA-Public Use
  Company Number: US-ASTRAZENECA-2010SE54534

PATIENT
  Sex: Female

DRUGS (2)
  1. ARIMIDEX [Suspect]
     Indication: BREAST CANCER
     Route: 048
     Dates: start: 20070101
  2. LOVAZA [Concomitant]

REACTIONS (15)
  - AMNESIA [None]
  - ANXIETY [None]
  - ARTHRALGIA [None]
  - ASTHENIA [None]
  - BONE DENSITY DECREASED [None]
  - CARPAL TUNNEL SYNDROME [None]
  - DEPRESSION SUICIDAL [None]
  - DYSSTASIA [None]
  - HOT FLUSH [None]
  - HYPERCHOLESTEROLAEMIA [None]
  - INSOMNIA [None]
  - MEMORY IMPAIRMENT [None]
  - OSTEOPENIA [None]
  - PAIN IN EXTREMITY [None]
  - TRIGGER FINGER [None]
